FAERS Safety Report 10165950 (Version 2)
Quarter: 2014Q4

REPORT INFORMATION
  Report Type: Other
  Country: IT (occurrence: IT)
  Receive Date: 20140510
  Receipt Date: 20141028
  Transmission Date: 20150528
  Serious: Yes (Hospitalization)
  Sender: FDA-Public Use
  Company Number: IT-MYLANLABS-2014S1010256

PATIENT

DRUGS (9)
  1. FILGRASTIM [Suspect]
     Active Substance: FILGRASTIM
     Indication: CHEMOTHERAPY
     Dosage: 30 MILLION IU,QD
     Route: 058
     Dates: start: 20140217, end: 20140221
  2. BORTEZOMIB [Suspect]
     Active Substance: BORTEZOMIB
     Indication: PLASMA CELL MYELOMA
     Dosage: 2.4 MG,UNK
     Dates: start: 20140210, end: 20140313
  3. LASIX [Concomitant]
     Active Substance: FUROSEMIDE
     Indication: PRODUCT USED FOR UNKNOWN INDICATION
     Dosage: 25 MG,UNK
  4. LEVOXACIN [Suspect]
     Active Substance: LEVOFLOXACIN
     Indication: CHEMOTHERAPY
     Dosage: 500 MG,QD
     Route: 048
     Dates: start: 20140210, end: 20140220
  5. RAMIPRIL. [Concomitant]
     Active Substance: RAMIPRIL
     Indication: PRODUCT USED FOR UNKNOWN INDICATION
     Dosage: 10 MG,UNK
  6. CARDIOASPIRIN [Concomitant]
     Active Substance: ASPIRIN
     Indication: PRODUCT USED FOR UNKNOWN INDICATION
     Dosage: 100 MG,UNK
  7. ALKERAN [Suspect]
     Active Substance: MELPHALAN
     Indication: PLASMA CELL MYELOMA
     Dosage: 16 MG,QD
     Route: 048
     Dates: start: 20140212, end: 20140215
  8. ACICLOVIR [Suspect]
     Active Substance: ACYCLOVIR
     Dosage: 800 MG,QD
     Route: 048
     Dates: start: 20140210, end: 20140316
  9. BACTRIM [Suspect]
     Active Substance: SULFAMETHOXAZOLE\TRIMETHOPRIM
     Indication: CHEMOTHERAPY
     Dosage: 2 DF,UNK
     Route: 048
     Dates: start: 20140210, end: 20140310

REACTIONS (5)
  - Rash maculo-papular [Recovering/Resolving]
  - Periorbital oedema [Recovering/Resolving]
  - Erythema [Recovering/Resolving]
  - Pruritus [Recovering/Resolving]
  - Urticaria [Recovering/Resolving]

NARRATIVE: CASE EVENT DATE: 20140313
